FAERS Safety Report 26059933 (Version 2)
Quarter: 2025Q4

REPORT INFORMATION
  Report Type: Spontaneous
  Country: US (occurrence: US)
  Receive Date: 20251118
  Receipt Date: 20251123
  Transmission Date: 20260119
  Serious: Yes (Death, Other)
  Sender: IPSEN BIOPHARMACEUTICALS, INC.
  Company Number: US-IPSEN Group, Research and Development-2025-28432

PATIENT
  Sex: Female

DRUGS (3)
  1. IRINOTECAN HYDROCHLORIDE [Suspect]
     Active Substance: IRINOTECAN HYDROCHLORIDE
     Indication: Medulloblastoma
  2. IRINOTECAN HYDROCHLORIDE [Suspect]
     Active Substance: IRINOTECAN HYDROCHLORIDE
     Indication: Off label use
  3. TEMODAR [Suspect]
     Active Substance: TEMOZOLOMIDE
     Indication: Medulloblastoma
     Route: 065

REACTIONS (4)
  - Death [Fatal]
  - Malignant neoplasm progression [Unknown]
  - Off label use [Unknown]
  - Product use issue [Unknown]
